FAERS Safety Report 18567376 (Version 4)
Quarter: 2020Q4

REPORT INFORMATION
  Report Type: Spontaneous
  Country: CA (occurrence: CA)
  Receive Date: 20201201
  Receipt Date: 20201215
  Transmission Date: 20210114
  Serious: Yes (Other)
  Sender: FDA-Public Use
  Company Number: CA-CELLTRION INC.-2019CA019775

PATIENT

DRUGS (2)
  1. INFLECTRA [Suspect]
     Active Substance: INFLIXIMAB-DYYB
     Indication: CROHN^S DISEASE
     Dosage: 225 MG 0, 2, 6 WEEKS, THEN EVERY 8 WEEKS)
     Route: 042
     Dates: start: 20190228, end: 20190228
  2. PREDNISONE. [Concomitant]
     Active Substance: PREDNISONE
     Dosage: 40 MG, 1X/DAY (QD)
     Route: 065
     Dates: start: 201901

REACTIONS (25)
  - Cerebral disorder [Unknown]
  - Condition aggravated [Not Recovered/Not Resolved]
  - Musculoskeletal chest pain [Unknown]
  - Cough [Not Recovered/Not Resolved]
  - Frequent bowel movements [Unknown]
  - Depressed mood [Unknown]
  - Insomnia [Unknown]
  - Periorbital swelling [Unknown]
  - Vision blurred [Not Recovered/Not Resolved]
  - Respiratory tract congestion [Not Recovered/Not Resolved]
  - Rash [Unknown]
  - Abdominal infection [Unknown]
  - Abscess [Not Recovered/Not Resolved]
  - Chills [Unknown]
  - Balance disorder [Unknown]
  - Arthropathy [Unknown]
  - Panic reaction [Unknown]
  - Flatulence [Unknown]
  - Crying [Unknown]
  - Nervousness [Not Recovered/Not Resolved]
  - Sinusitis [Not Recovered/Not Resolved]
  - Eating disorder [Unknown]
  - Feeling abnormal [Unknown]
  - Asthenia [Not Recovered/Not Resolved]
  - Pain [Not Recovered/Not Resolved]

NARRATIVE: CASE EVENT DATE: 2019
